FAERS Safety Report 17500523 (Version 1)
Quarter: 2020Q1

REPORT INFORMATION
  Report Type: Spontaneous
  Country: NL (occurrence: NL)
  Receive Date: 20200305
  Receipt Date: 20200305
  Transmission Date: 20200409
  Serious: Yes (Other)
  Sender: FDA-Public Use
  Company Number: NL-TEVA-2020-NL-1194638

PATIENT
  Sex: Male
  Weight: 72 kg

DRUGS (10)
  1. ACETYLSALICYLZUUR [Concomitant]
     Active Substance: ASPIRIN
     Dosage: TABLET, 80 MG (MILLIGRAM)
  2. FOSINOPRIL [Concomitant]
     Active Substance: FOSINOPRIL
     Dosage: TABLET, 20 MG (MILLIGRAM)
  3. SYMBICORT [Concomitant]
     Active Substance: BUDESONIDE\FORMOTEROL FUMARATE DIHYDRATE
     Dosage: INHALATION POWDER, 200/6 MICROGRAM / DOSE (MICROGRAMS PER DOSE)
  4. PANTOPRAZOL [Concomitant]
     Active Substance: PANTOPRAZOLE SODIUM
     Dosage: GASTRO-RESISTANT TABLET, 20 MG (MILLIGRAMS)
  5. ATORVASTATINE [Concomitant]
     Active Substance: ATORVASTATIN
     Dosage: TABLET, 10 MG (MILLIGRAM)
  6. SAFLUTAN (TAFLUPROST) [Concomitant]
     Dosage: EYE DROPS, 15 MICROGRAM / ML (MICROGRAMS PER MILLILITER)
  7. BISOPROLOL [Concomitant]
     Active Substance: BISOPROLOL
     Dosage: TABLET, 2.5 MG (MILLIGRAMS)
  8. BACLOFEN. [Suspect]
     Active Substance: BACLOFEN
     Indication: MUSCLE SPASMS
     Dosage: TABLET, 25 MG (MILLIGRAM), ONCE A DAY, 55-60 MG PER DAY
     Route: 065
     Dates: start: 2002
  9. IRBESARTAN. [Concomitant]
     Active Substance: IRBESARTAN
     Dosage: TABLET, 300 MG (MILLIGRAM)
  10. HYDROCHLOORTHIAZIDE [Concomitant]
     Active Substance: HYDROCHLOROTHIAZIDE
     Dosage: TABLET, 12.5 MG (MILLIGRAMS)

REACTIONS (1)
  - Sudden onset of sleep [Recovered/Resolved]
